FAERS Safety Report 7410434-9 (Version None)
Quarter: 2011Q2

REPORT INFORMATION
  Report Type: 
  Country: None (occurrence: None)
  Receive Date: 20110412
  Receipt Date: 20110331
  Transmission Date: 20111010
  Serious: Yes (Other)
  Sender: FDA-Public Use
  Company Number: US-BAYER-2011-027992

PATIENT
  Sex: Male

DRUGS (12)
  1. LEVITRA [Suspect]
     Indication: ERECTILE DYSFUNCTION
     Dosage: 1 DF, ONCE
     Route: 048
     Dates: start: 20110101, end: 20110101
  2. COUMADIN [Concomitant]
  3. GABAPENTIN [Concomitant]
  4. LISINOPRIL [Concomitant]
  5. LEVITRA [Suspect]
     Dosage: 1 DF, PRN
     Route: 048
     Dates: start: 20110327
  6. SIMVASTATIN [Concomitant]
  7. ZOLPIDEM [Concomitant]
  8. FLOMAX [Concomitant]
  9. XANAX [Concomitant]
  10. TRAMADOL HCL [Concomitant]
  11. FUROSEMIDE [Concomitant]
  12. SERTRALINE HYDROCHLORIDE [Concomitant]

REACTIONS (3)
  - VOMITING [None]
  - TINNITUS [None]
  - DIARRHOEA [None]
